FAERS Safety Report 8163174-5 (Version None)
Quarter: 2012Q1

REPORT INFORMATION
  Report Type: 
  Country: None (occurrence: None)
  Receive Date: 20120224
  Receipt Date: 20111004
  Transmission Date: 20120608
  Serious: No
  Sender: FDA-Public Use
  Company Number: US-PFIZER INC-K201101169

PATIENT
  Sex: Male

DRUGS (3)
  1. FLECTOR [Suspect]
     Indication: BACK PAIN
     Dosage: UNK PATCH, UNK
     Route: 061
  2. EXFORGE [Suspect]
     Dosage: UNK
  3. VALIUM [Suspect]
     Indication: SLEEP DISORDER
     Dosage: UNK

REACTIONS (2)
  - HEADACHE [None]
  - BLOOD PRESSURE INCREASED [None]
